FAERS Safety Report 6801715-8 (Version None)
Quarter: 2010Q2

REPORT INFORMATION
  Report Type: 
  Country: None (occurrence: None)
  Receive Date: 20100629
  Receipt Date: 20100617
  Transmission Date: 20101027
  Serious: Yes (Other)
  Sender: FDA-Public Use
  Company Number: US-PFIZER INC-2010076728

PATIENT
  Sex: Female
  Weight: 64.399 kg

DRUGS (3)
  1. ZOLOFT [Suspect]
     Indication: BIPOLAR DISORDER
     Dosage: 200 MG, 1X/DAY
     Route: 048
     Dates: start: 20050101
  2. ZOLOFT [Suspect]
     Indication: MAJOR DEPRESSION
  3. WELLBUTRIN [Suspect]
     Indication: BIPOLAR DISORDER

REACTIONS (3)
  - BLADDER DISORDER [None]
  - BLOOD TRIGLYCERIDES INCREASED [None]
  - HIGH DENSITY LIPOPROTEIN DECREASED [None]
